FAERS Safety Report 5994869-7 (Version None)
Quarter: 2008Q4

REPORT INFORMATION
  Report Type: 
  Country: None (occurrence: None)
  Receive Date: 20081212
  Receipt Date: 20080912
  Transmission Date: 20090506
  Serious: No
  Sender: FDA-Public Use
  Company Number: US-ABBOTT-08P-163-0476791-00

PATIENT
  Sex: Female
  Weight: 86.26 kg

DRUGS (11)
  1. HUMIRA [Suspect]
     Indication: RHEUMATOID ARTHRITIS
     Route: 050
     Dates: start: 20080501
  2. HUMIRA [Suspect]
     Route: 050
     Dates: start: 20080701
  3. PREDNISONE TAB [Concomitant]
     Indication: RHEUMATOID ARTHRITIS
     Dosage: 4 MG DAILY
     Route: 048
     Dates: start: 19980101
  4. AZATHIOPRINE [Concomitant]
     Indication: RHEUMATOID ARTHRITIS
     Route: 048
     Dates: start: 20030101
  5. FLUOXETINE [Concomitant]
     Indication: ANXIETY
     Dosage: 40 MG DAILY
     Route: 048
     Dates: start: 19880101
  6. FLUOXETINE [Concomitant]
     Indication: DEPRESSION
  7. TOPIRAMATE [Concomitant]
     Indication: MIGRAINE
     Route: 048
     Dates: start: 20080501
  8. TOPIRAMATE [Concomitant]
     Indication: HEADACHE
  9. OVER-THE-COUNTER PRILOSEC [Concomitant]
     Indication: GASTRIC DISORDER
     Dosage: 20 MG DAILY
     Route: 048
     Dates: start: 20080301
  10. OVER-THE-COUNTER PRILOSEC [Concomitant]
     Indication: PROPHYLAXIS
  11. IBUPROFEN [Concomitant]
     Indication: RHEUMATOID ARTHRITIS
     Route: 048
     Dates: start: 20080301

REACTIONS (4)
  - DIARRHOEA [None]
  - FEELING HOT [None]
  - HYPERHIDROSIS [None]
  - NAUSEA [None]
